FAERS Safety Report 4475449-1 (Version None)
Quarter: 2004Q4

REPORT INFORMATION
  Report Type: 
  Country: None (occurrence: None)
  Receive Date: 20041015
  Receipt Date: 20041006
  Transmission Date: 20050328
  Serious: Yes (Other)
  Sender: FDA-Public Use
  Company Number: US-ROCHE-382568

PATIENT
  Sex: Female

DRUGS (2)
  1. KYTRIL [Suspect]
     Indication: ABDOMINAL PAIN
     Route: 065
  2. DEMEROL [Suspect]
     Indication: ABDOMINAL PAIN
     Route: 048

REACTIONS (1)
  - CONVULSION [None]
